FAERS Safety Report 8776534 (Version 2)
Quarter: 2012Q4

REPORT INFORMATION
  Report Type: 
  Country: FR (occurrence: FR)
  Receive Date: 20120910
  Receipt Date: 20120917
  Transmission Date: 20130627
  Serious: Yes (Disabling, Other)
  Sender: FDA-Public Use
  Company Number: FR-JNJFOC-20120900807

PATIENT
  Sex: Female
  Weight: 58 kg

DRUGS (9)
  1. INTELENCE [Suspect]
     Indication: HIV INFECTION
     Route: 048
  2. CORDARONE [Interacting]
     Indication: PRODUCT USED FOR UNKNOWN INDICATION
     Route: 048
  3. ISENTRESS [Concomitant]
     Indication: HIV INFECTION
     Route: 065
  4. FUZEON [Concomitant]
     Indication: HIV INFECTION
     Route: 065
  5. LEVOTHYROX [Concomitant]
     Indication: PRODUCT USED FOR UNKNOWN INDICATION
     Route: 065
  6. DIAMICRON [Concomitant]
     Indication: PRODUCT USED FOR UNKNOWN INDICATION
     Route: 065
  7. GLUCOPHAGE [Concomitant]
     Indication: PRODUCT USED FOR UNKNOWN INDICATION
     Route: 065
  8. COVERSYL [Concomitant]
     Indication: PRODUCT USED FOR UNKNOWN INDICATION
     Route: 065
  9. LOXEN [Concomitant]
     Indication: PRODUCT USED FOR UNKNOWN INDICATION
     Route: 065

REACTIONS (2)
  - Neuropathy peripheral [Not Recovered/Not Resolved]
  - Drug interaction [Not Recovered/Not Resolved]
